FAERS Safety Report 9236482 (Version 7)
Quarter: 2014Q3

REPORT INFORMATION
  Report Type: Spontaneous
  Country: CA (occurrence: CA)
  Receive Date: 20130417
  Receipt Date: 20140827
  Transmission Date: 20150326
  Serious: Yes (Hospitalization, Disabling)
  Sender: FDA-Public Use
  Company Number: CA-009507513-1304CAN005193

PATIENT
  Age: 29 Year
  Sex: Male
  Weight: 78.91 kg

DRUGS (3)
  1. ZOLOFT [Concomitant]
     Active Substance: SERTRALINE HYDROCHLORIDE
     Indication: SEASONAL AFFECTIVE DISORDER
     Dosage: UNK
     Dates: start: 1997, end: 1999
  2. FINASTERIDE. [Suspect]
     Active Substance: FINASTERIDE
     Indication: ALOPECIA
     Route: 048
  3. PROPECIA [Suspect]
     Active Substance: FINASTERIDE
     Indication: ANDROGENETIC ALOPECIA
     Dosage: 1 MG, UNK
     Route: 048
     Dates: start: 199807, end: 2010

REACTIONS (19)
  - Emotional distress [Unknown]
  - Erectile dysfunction [Not Recovered/Not Resolved]
  - Weight increased [Unknown]
  - Oligospermia [Unknown]
  - Varicocele repair [Unknown]
  - Anxiety [Unknown]
  - Muscle atrophy [Unknown]
  - Alopecia [Recovering/Resolving]
  - Hernia [Unknown]
  - Infertility [Unknown]
  - Varicose vein [Unknown]
  - Inguinal hernia [Unknown]
  - Organic erectile dysfunction [Recovering/Resolving]
  - Gynaecomastia [Unknown]
  - Gastrooesophageal reflux disease [Unknown]
  - Loss of libido [Recovering/Resolving]
  - Varicocele [Unknown]
  - Peripheral vascular disorder [Unknown]
  - Onychoclasis [Unknown]
